FAERS Safety Report 6715340-0 (Version None)
Quarter: 2010Q2

REPORT INFORMATION
  Report Type: 
  Country: None (occurrence: None)
  Receive Date: 20100507
  Receipt Date: 20100507
  Transmission Date: 20101027
  Serious: No
  Sender: FDA-Public Use
  Company Number: None

PATIENT
  Sex: Male
  Weight: 24.0406 kg

DRUGS (1)
  1. CHILDREN'S TYLENOL SUSPENSION 4 OZ MCNEIL [Suspect]
     Indication: VIRAL SKIN INFECTION
     Dosage: 1.5 TEA SPOONS EVERY 6 HOURS PO
     Route: 048
     Dates: start: 20100501, end: 20100504

REACTIONS (5)
  - BACTERIAL INFECTION [None]
  - PRODUCT CONTAMINATION MICROBIAL [None]
  - PRODUCT QUALITY ISSUE [None]
  - RASH MACULO-PAPULAR [None]
  - VIRAL INFECTION [None]
